FAERS Safety Report 18871568 (Version 1)
Quarter: 2021Q1

REPORT INFORMATION
  Report Type: Spontaneous
  Country: DE (occurrence: DE)
  Receive Date: 20210210
  Receipt Date: 20210210
  Transmission Date: 20210420
  Serious: No
  Sender: FDA-Public Use
  Company Number: DE-LUPIN PHARMACEUTICALS INC.-2021-01363

PATIENT
  Age: 30 Year
  Sex: Female

DRUGS (6)
  1. CEFTRIAXONE. [Suspect]
     Active Substance: CEFTRIAXONE
     Indication: AMOEBIASIS
  2. METRONIDAZOLE. [Suspect]
     Active Substance: METRONIDAZOLE
     Indication: HEPATIC AMOEBIASIS
     Dosage: 500 MILLIGRAM, BID
     Route: 042
     Dates: start: 201909
  3. METRONIDAZOLE. [Suspect]
     Active Substance: METRONIDAZOLE
     Indication: AMOEBIASIS
  4. PAROMOMYCIN [Suspect]
     Active Substance: PAROMOMYCIN
     Indication: AMOEBIASIS
  5. CEFTRIAXONE. [Suspect]
     Active Substance: CEFTRIAXONE
     Indication: HEPATIC AMOEBIASIS
     Dosage: 2 GRAM, QD
     Route: 042
     Dates: start: 201909
  6. PAROMOMYCIN [Suspect]
     Active Substance: PAROMOMYCIN
     Indication: HEPATIC AMOEBIASIS
     Dosage: 25 MILLIGRAM/KILOGRAM, QD
     Route: 048
     Dates: start: 201909

REACTIONS (2)
  - Normal newborn [Unknown]
  - Maternal exposure during pregnancy [Unknown]

NARRATIVE: CASE EVENT DATE: 202006
